FAERS Safety Report 7932753-X (Version None)
Quarter: 2011Q4

REPORT INFORMATION
  Report Type: 
  Country: None (occurrence: None)
  Receive Date: 20111122
  Receipt Date: 20111118
  Transmission Date: 20120403
  Serious: Yes (Hospitalization)
  Sender: FDA-Public Use
  Company Number: DK-AMGEN-DNKSP2011061168

PATIENT
  Age: 61 Year
  Sex: Male
  Weight: 52 kg

DRUGS (6)
  1. NEUPOGEN [Suspect]
     Indication: DIFFUSE LARGE B-CELL LYMPHOMA
     Dosage: 6 MG, UNK
     Route: 058
     Dates: start: 20110720
  2. CYCLOPHOSPHAMIDE [Suspect]
     Indication: DIFFUSE LARGE B-CELL LYMPHOMA
     Dosage: 1275 MG, UNK
     Route: 042
     Dates: start: 20110718
  3. PREDNISONE TAB [Suspect]
     Indication: DIFFUSE LARGE B-CELL LYMPHOMA
     Dosage: 100 MG, UNK
     Route: 048
     Dates: start: 20110718
  4. DOXORUBICIN HCL [Suspect]
     Indication: DIFFUSE LARGE B-CELL LYMPHOMA
     Dosage: 85 MG, UNK
     Route: 042
     Dates: start: 20110718
  5. VINCRISTINE [Suspect]
     Indication: DIFFUSE LARGE B-CELL LYMPHOMA
     Dosage: 2 MG, UNK
     Route: 042
     Dates: start: 20110718
  6. RITUXIMAB [Suspect]
     Indication: DIFFUSE LARGE B-CELL LYMPHOMA
     Dosage: 650 MG, UNK
     Route: 042
     Dates: start: 20110718

REACTIONS (4)
  - DIARRHOEA [None]
  - STOMATITIS [None]
  - WEIGHT DECREASED [None]
  - FEBRILE NEUTROPENIA [None]
